FAERS Safety Report 9611800 (Version 3)
Quarter: 2013Q4

REPORT INFORMATION
  Report Type: Spontaneous
  Country: BR (occurrence: BR)
  Receive Date: 20131010
  Receipt Date: 20131112
  Transmission Date: 20140711
  Serious: Yes (Death, Other)
  Sender: FDA-Public Use
  Company Number: BR-AMGEN-BRASP2013071024

PATIENT
  Sex: Female

DRUGS (1)
  1. ENBREL [Suspect]
     Indication: RHEUMATOID ARTHRITIS
     Dosage: 50 MG, WEEKLY
     Route: 065
     Dates: start: 201303

REACTIONS (6)
  - Death [Fatal]
  - Rheumatic disorder [Unknown]
  - Arthritis [Unknown]
  - Osteoarthritis [Unknown]
  - Feeling abnormal [Unknown]
  - Asthenia [Unknown]
